FAERS Safety Report 8762560 (Version 6)
Quarter: 2014Q1

REPORT INFORMATION
  Report Type: Spontaneous
  Country: US (occurrence: US)
  Receive Date: 20120830
  Receipt Date: 20140225
  Transmission Date: 20141002
  Serious: Yes (Hospitalization, Other)
  Sender: FDA-Public Use
  Company Number: US-ROCHE-1065346

PATIENT
  Age: 25 Year
  Sex: Male
  Weight: 86.26 kg

DRUGS (1)
  1. ACCUTANE [Suspect]
     Indication: ACNE
     Route: 065
     Dates: start: 199912, end: 200005

REACTIONS (6)
  - Crohn^s disease [Unknown]
  - Colitis ulcerative [Unknown]
  - Depression [Unknown]
  - Inflammatory bowel disease [Unknown]
  - Polyp [Unknown]
  - Mental disorder [Unknown]
